FAERS Safety Report 20808652 (Version 1)
Quarter: 2022Q2

REPORT INFORMATION
  Report Type: Other
  Country: CA (occurrence: CA)
  Receive Date: 20220510
  Receipt Date: 20220510
  Transmission Date: 20220721
  Serious: Yes (Other)
  Sender: FDA-Public Use
  Company Number: CA-APOTEX-2022AP007090

PATIENT
  Sex: Male

DRUGS (7)
  1. ACETAMINOPHEN\OXYCODONE HYDROCHLORIDE [Suspect]
     Active Substance: ACETAMINOPHEN\OXYCODONE HYDROCHLORIDE
     Indication: Product used for unknown indication
     Dosage: UNK
     Route: 048
  2. OXYCODONE [Suspect]
     Active Substance: OXYCODONE
     Indication: Product used for unknown indication
     Dosage: UNK
     Route: 048
  3. TRAMADOL [Suspect]
     Active Substance: TRAMADOL
     Indication: Product used for unknown indication
     Dosage: UNK
     Route: 048
  4. OXYCONTIN [Suspect]
     Active Substance: OXYCODONE HYDROCHLORIDE
     Indication: Surgery
     Dosage: UNK
     Route: 048
  5. OXYCONTIN [Suspect]
     Active Substance: OXYCODONE HYDROCHLORIDE
     Indication: Pain
  6. ACETAMINOPHEN\OXYCODONE HYDROCHLORIDE\OXYCODONE TEREPHTHALATE [Suspect]
     Active Substance: ACETAMINOPHEN\OXYCODONE HYDROCHLORIDE\OXYCODONE TEREPHTHALATE
     Indication: Pain
     Dosage: UNK
     Route: 048
  7. ACETAMINOPHEN\OXYCODONE HYDROCHLORIDE\OXYCODONE TEREPHTHALATE [Suspect]
     Active Substance: ACETAMINOPHEN\OXYCODONE HYDROCHLORIDE\OXYCODONE TEREPHTHALATE
     Indication: Surgery

REACTIONS (20)
  - Blood testosterone decreased [Unknown]
  - Cold sweat [Unknown]
  - Diarrhoea [Unknown]
  - Disturbance in attention [Unknown]
  - Dry mouth [Unknown]
  - Dyspepsia [Unknown]
  - Hyperhidrosis [Unknown]
  - Insomnia [Unknown]
  - Muscle spasms [Unknown]
  - Myalgia [Unknown]
  - Palpitations [Unknown]
  - Piloerection [Unknown]
  - Sexual dysfunction [Unknown]
  - Sleep apnoea syndrome [Unknown]
  - Spina bifida [Unknown]
  - Vision blurred [Unknown]
  - Drug dependence [Unknown]
  - Nausea [Unknown]
  - Dizziness [Unknown]
  - Vomiting [Unknown]
